FAERS Safety Report 7920709-2 (Version None)
Quarter: 2011Q4

REPORT INFORMATION
  Report Type: 
  Country: None (occurrence: None)
  Receive Date: 20111117
  Receipt Date: 20111107
  Transmission Date: 20120403
  Serious: Yes (Other)
  Sender: FDA-Public Use
  Company Number: US-JNJFOC-20111102769

PATIENT

DRUGS (2)
  1. REMICADE [Suspect]
     Indication: PSORIATIC ARTHROPATHY
     Dosage: INFUSIONS 1-3
     Route: 042
     Dates: start: 20100101
  2. REMICADE [Suspect]
     Dosage: 4TH INFUSION
     Route: 042

REACTIONS (4)
  - PAIN [None]
  - LUPUS-LIKE SYNDROME [None]
  - FATIGUE [None]
  - DEHYDRATION [None]
